FAERS Safety Report 10053351 (Version 1)
Quarter: 2014Q2

REPORT INFORMATION
  Report Type: Spontaneous
  Country: US (occurrence: US)
  Receive Date: 20140402
  Receipt Date: 20140402
  Transmission Date: 20141212
  Serious: No
  Sender: FDA-Public Use
  Company Number: US-MALLINCKRODT-T201401357

PATIENT
  Age: 57 Year
  Sex: Female

DRUGS (3)
  1. OPTIRAY [Suspect]
     Indication: UROGRAM
     Dosage: 120 ML, SINGLE, 2 ML/SEC
     Route: 042
     Dates: start: 20131119, end: 20131119
  2. BENICAR [Concomitant]
     Dosage: UNK
  3. CRESTOR [Concomitant]
     Dosage: UNK

REACTIONS (2)
  - Rash macular [Recovered/Resolved]
  - Urticaria [Recovered/Resolved]
